FAERS Safety Report 9336394 (Version 1)
Quarter: 2013Q2

REPORT INFORMATION
  Report Type: Spontaneous
  Country: US (occurrence: US)
  Receive Date: 20130607
  Receipt Date: 20130607
  Transmission Date: 20140414
  Serious: No
  Sender: FDA-Public Use
  Company Number: US-009507513-1306USA002413

PATIENT
  Age: 8 Year
  Sex: Male

DRUGS (4)
  1. PEGINTRON [Suspect]
     Indication: NEUROFIBROMA
     Dosage: 30 MICROGRAM, QW
     Route: 058
     Dates: start: 201303
  2. IBUPROFEN [Concomitant]
     Dosage: UNK
  3. MIRALAX [Concomitant]
     Dosage: UNK
  4. DULCOLAX [Concomitant]
     Dosage: UNK

REACTIONS (3)
  - Urticaria [Not Recovered/Not Resolved]
  - Rash [Not Recovered/Not Resolved]
  - Off label use [Unknown]
